FAERS Safety Report 23358353 (Version 2)
Quarter: 2024Q1

REPORT INFORMATION
  Report Type: Spontaneous
  Country: JP (occurrence: JP)
  Receive Date: 20240102
  Receipt Date: 20240130
  Transmission Date: 20240410
  Serious: Yes (Other)
  Sender: FDA-Public Use
  Company Number: JP-MYLANLABS-2023M1138302

PATIENT
  Age: 2 Year
  Sex: Male

DRUGS (6)
  1. GABAPENTIN [Suspect]
     Active Substance: GABAPENTIN
     Indication: Product used for unknown indication
     Dosage: 150 MILLIGRAM, BID
     Route: 048
     Dates: start: 20231206, end: 20231212
  2. TIZANIDINE [Concomitant]
     Active Substance: TIZANIDINE
     Dosage: 2.4 MILLIGRAM, BID
     Route: 048
     Dates: start: 20230901
  3. CATAPRES [Concomitant]
     Active Substance: CLONIDINE HYDROCHLORIDE
     Dosage: 80 MICROGRAM, BID
     Route: 048
     Dates: start: 20230901
  4. PHENOBARBITAL [Concomitant]
     Active Substance: PHENOBARBITAL
     Dosage: 40 MILLIGRAM, BID
     Route: 048
     Dates: start: 20230901
  5. RAMELTEON [Concomitant]
     Active Substance: RAMELTEON
     Dosage: 2 MILLIGRAM, BID
     Route: 048
     Dates: start: 20230901
  6. Benzalin [Concomitant]
     Dosage: 1 MILLIGRAM, BID;
     Route: 048
     Dates: start: 20230901

REACTIONS (3)
  - Bradycardia [Recovered/Resolved]
  - Off label use [Unknown]
  - Wrong technique in product usage process [Unknown]
